FAERS Safety Report 21068448 (Version 1)
Quarter: 2022Q3

REPORT INFORMATION
  Report Type: Spontaneous
  Country: US (occurrence: US)
  Receive Date: 20220712
  Receipt Date: 20220712
  Transmission Date: 20221026
  Serious: No
  Sender: FDA-Public Use
  Company Number: US-BRISTOL-MYERS SQUIBB COMPANY-2022-063331

PATIENT
  Age: 75 Year
  Sex: Male
  Weight: 68.94 kg

DRUGS (1)
  1. REVLIMID [Suspect]
     Active Substance: LENALIDOMIDE
     Indication: Plasma cell myeloma
     Dosage: FREQ - D1-21 Q 28 DAYS
     Route: 048
     Dates: start: 20211102

REACTIONS (2)
  - Herpes zoster [Recovering/Resolving]
  - Rash [Recovering/Resolving]
